FAERS Safety Report 12822919 (Version 1)
Quarter: 2016Q4

REPORT INFORMATION
  Report Type: Spontaneous
  Country: US (occurrence: US)
  Receive Date: 20161007
  Receipt Date: 20161007
  Transmission Date: 20170207
  Serious: Yes (Other)
  Sender: FDA-Public Use
  Company Number: US-BRISTOL-MYERS SQUIBB COMPANY-BMS-2016-082848

PATIENT
  Age: 18 Year
  Sex: Male

DRUGS (1)
  1. ABILIFY [Suspect]
     Active Substance: ARIPIPRAZOLE
     Indication: MAJOR DEPRESSION
     Dosage: 7.5 MG, QD
     Route: 048

REACTIONS (5)
  - Blood parathyroid hormone decreased [Unknown]
  - Fracture [Unknown]
  - Off label use [Unknown]
  - Bone density decreased [Unknown]
  - Osteopenia [Unknown]
